FAERS Safety Report 25014978 (Version 2)
Quarter: 2025Q1

REPORT INFORMATION
  Report Type: Spontaneous
  Country: CN (occurrence: CN)
  Receive Date: 20250226
  Receipt Date: 20250228
  Transmission Date: 20250409
  Serious: Yes (Other)
  Sender: PFIZER
  Company Number: CN-PFIZER INC-PV202500021937

PATIENT
  Age: 58 Year
  Sex: Female

DRUGS (1)
  1. CRIZOTINIB [Suspect]
     Active Substance: CRIZOTINIB
     Indication: Lung adenocarcinoma stage IV
     Dosage: 250 MG, 2X/DAY
     Route: 048

REACTIONS (8)
  - Pericardial effusion [Unknown]
  - Pneumonia [Unknown]
  - Pneumonitis [Unknown]
  - Neoplasm progression [Unknown]
  - Pleural thickening [Unknown]
  - Pleural effusion [Unknown]
  - Cholelithiasis [Unknown]
  - Renal fusion anomaly [Unknown]

NARRATIVE: CASE EVENT DATE: 20250218
